FAERS Safety Report 5507080-0 (Version None)
Quarter: 2007Q4

REPORT INFORMATION
  Report Type: 
  Country: None (occurrence: None)
  Receive Date: 20071105
  Receipt Date: 20071031
  Transmission Date: 20080405
  Serious: Yes (Death, Other)
  Sender: FDA-Public Use
  Company Number: JP-ABBOTT-07P-087-0422748-00

PATIENT
  Age: 76 Year
  Sex: Female

DRUGS (11)
  1. CLARITH TABLETS [Suspect]
     Indication: CHRONIC SINUSITIS
     Route: 048
     Dates: start: 20070516, end: 20070531
  2. CLARITH TABLETS [Suspect]
     Route: 048
     Dates: end: 20070515
  3. BIFIDOBACTERIUM [Concomitant]
     Indication: DRUG USE FOR UNKNOWN INDICATION
     Route: 048
  4. LEVODOPA / CARBIDOPA HYDRATE [Concomitant]
     Indication: PARKINSON'S DISEASE
     Route: 048
  5. PERGOLIDE MESYLATE [Concomitant]
     Indication: PARKINSON'S DISEASE
     Route: 048
  6. AMANTADINE HYDROCHLORIDE [Concomitant]
     Indication: PARKINSON'S DISEASE
     Route: 048
  7. URSODIOL [Concomitant]
     Indication: DRUG USE FOR UNKNOWN INDICATION
     Route: 048
  8. MOSAPRIDE CITRATE [Concomitant]
     Indication: REFLUX OESOPHAGITIS
     Route: 048
  9. BROTIZOLAM [Concomitant]
     Indication: INSOMNIA
     Route: 048
  10. LANSOPRAZOLE [Concomitant]
     Indication: REFLUX OESOPHAGITIS
     Route: 048
     Dates: end: 20070524
  11. FAMOTIDINE [Concomitant]
     Indication: REFLUX OESOPHAGITIS
     Route: 048
     Dates: start: 20070524

REACTIONS (3)
  - DEPRESSED LEVEL OF CONSCIOUSNESS [None]
  - PSEUDOMEMBRANOUS COLITIS [None]
  - SEPSIS [None]
